FAERS Safety Report 9330650 (Version 1)
Quarter: 2013Q2

REPORT INFORMATION
  Report Type: Spontaneous
  Country: US (occurrence: None)
  Receive Date: 20130604
  Receipt Date: 20130604
  Transmission Date: 20140414
  Serious: Yes (Hospitalization)
  Sender: FDA-Public Use
  Company Number: None

PATIENT
  Age: 66 Year
  Sex: Male

DRUGS (1)
  1. METOPROLOL [Suspect]
     Indication: CARDIAC DISORDER
     Route: 048
     Dates: start: 20130522, end: 20130522

REACTIONS (1)
  - Sinus arrest [None]
